FAERS Safety Report 21363997 (Version 1)
Quarter: 2022Q3

REPORT INFORMATION
  Report Type: Report from Study
  Country: US (occurrence: US)
  Receive Date: 20220922
  Receipt Date: 20220922
  Transmission Date: 20221027
  Serious: No
  Sender: FDA-Public Use
  Company Number: US-ABBVIE-4129182

PATIENT

DRUGS (4)
  1. SKYRIZI [Suspect]
     Active Substance: RISANKIZUMAB-RZAA
     Indication: Psoriasis
     Route: 058
  2. Moderna [Concomitant]
     Indication: COVID-19 immunisation
     Dosage: 2ND DOSE?ONCE
     Route: 030
     Dates: start: 20210125, end: 20210125
  3. Moderna [Concomitant]
     Indication: COVID-19 immunisation
     Dosage: ONCE?1ST DOSE
     Route: 030
     Dates: start: 20201228, end: 20201228
  4. Moderna [Concomitant]
     Indication: COVID-19 immunisation
     Dosage: ONCE?3RD DOSE?BOOSTER VACCINE
     Route: 030
     Dates: start: 20211103, end: 20211103

REACTIONS (1)
  - Skin disorder [Not Recovered/Not Resolved]

NARRATIVE: CASE EVENT DATE: 20220101
